FAERS Safety Report 11226972 (Version 1)
Quarter: 2015Q2

REPORT INFORMATION
  Report Type: Spontaneous
  Country: US (occurrence: US)
  Receive Date: 20150630
  Receipt Date: 20150630
  Transmission Date: 20150821
  Serious: No
  Sender: FDA-Public Use
  Company Number: US-AMGEN-USASP2015063119

PATIENT
  Age: 39 Year
  Sex: Female
  Weight: 84.35 kg

DRUGS (1)
  1. ENBREL [Suspect]
     Active Substance: ETANERCEPT
     Indication: PSORIASIS
     Dosage: 50 MG, 2 TIMES/WK (TWICE A WEEK FOR 3 MONTHS)
     Route: 058
     Dates: start: 201503

REACTIONS (4)
  - Medication error [Unknown]
  - Musculoskeletal disorder [Unknown]
  - Injection site pruritus [Unknown]
  - Injection site swelling [Unknown]

NARRATIVE: CASE EVENT DATE: 2015
